FAERS Safety Report 25774359 (Version 1)
Quarter: 2025Q3

REPORT INFORMATION
  Report Type: Report from Study
  Country: US (occurrence: US)
  Receive Date: 20250908
  Receipt Date: 20250908
  Transmission Date: 20251020
  Serious: Yes (Other)
  Sender: ROCHE
  Company Number: US-ROCHE-3555712

PATIENT
  Age: 76 Year
  Sex: Male

DRUGS (2)
  1. XOLAIR [Suspect]
     Active Substance: OMALIZUMAB
     Indication: Chronic spontaneous urticaria
     Route: 058
  2. XOLAIR [Suspect]
     Active Substance: OMALIZUMAB

REACTIONS (3)
  - Pain [Unknown]
  - Back pain [Not Recovered/Not Resolved]
  - Back disorder [Unknown]

NARRATIVE: CASE EVENT DATE: 20250801
